FAERS Safety Report 9485718 (Version 1)
Quarter: 2013Q3

REPORT INFORMATION
  Report Type: Spontaneous
  Country: GB (occurrence: None)
  Receive Date: 20130822
  Receipt Date: 20130822
  Transmission Date: 20140515
  Serious: Yes (Life-Threatening)
  Sender: FDA-Public Use
  Company Number: AUR-APL-2013-06746

PATIENT
  Age: 69 Year
  Sex: Male

DRUGS (15)
  1. AMOXICILLIN (AMOXICILLIN) [Suspect]
     Indication: LOWER RESPIRATORY TRACT INFECTION
     Dosage: 1500MG (500MG, 3 IN 1D) ORAL
     Route: 048
     Dates: start: 20130724, end: 20130731
  2. BENDROFLUMETHIAZIDE (BENDROFLUMETHIAZIDE) [Concomitant]
  3. CETIRIZINE (CETIRIZINE) [Concomitant]
  4. COLECALCIFEROL (COLECALCIFEROL) [Concomitant]
  5. DICLOFENAC (DICLOFENAC) [Concomitant]
  6. FINASTERIDE (FINASTERIDE) [Concomitant]
  7. KETOVITE (KETOVITE) [Concomitant]
  8. LEFLUNOMIDE (LEFLUNOMIDE) [Concomitant]
  9. LISINOPRIL (LISINOPRIL) [Concomitant]
  10. PARACETAMOL (PARACETAMOL) [Concomitant]
  11. RANITIDINE (RANITIDINE) [Concomitant]
  12. TAMSULOSIN (TAMSULOSIN) [Concomitant]
  13. TEMAZEPAM (TEMAZEPAM) [Concomitant]
  14. TRAMADOL (TRAMADOL) [Concomitant]
  15. VENLAFAXINE (VENLAFAXINE) [Concomitant]

REACTIONS (2)
  - Swollen tongue [None]
  - Dysphagia [None]
